FAERS Safety Report 6624684-2 (Version None)
Quarter: 2010Q1

REPORT INFORMATION
  Report Type: 
  Country: None (occurrence: None)
  Receive Date: 20100310
  Receipt Date: 20091008
  Transmission Date: 20100710
  Serious: No
  Sender: FDA-Public Use
  Company Number: US-BIOGENIDEC-2009BI032415

PATIENT
  Age: 39 Year
  Sex: Female

DRUGS (4)
  1. AVONEX [Suspect]
     Indication: MULTIPLE SCLEROSIS
     Route: 030
     Dates: start: 20030101, end: 20040101
  2. AVONEX [Suspect]
     Route: 030
     Dates: start: 20040101
  3. LEXAPRO [Concomitant]
     Indication: ANXIETY
     Route: 048
     Dates: start: 20020101
  4. BIRTH CONTROL PILLS [Concomitant]
     Indication: CONTRACEPTION

REACTIONS (3)
  - DENTAL CARIES [None]
  - GINGIVAL BLEEDING [None]
  - MULTIPLE SCLEROSIS RELAPSE [None]
